FAERS Safety Report 11120461 (Version 3)
Quarter: 2015Q2

REPORT INFORMATION
  Report Type: Report from Study
  Country: ES (occurrence: ES)
  Receive Date: 20150518
  Receipt Date: 20150622
  Transmission Date: 20150821
  Serious: Yes (Hospitalization)
  Sender: FDA-Public Use
  Company Number: ES-SA-2015SA064581

PATIENT
  Age: 86 Year
  Sex: Female

DRUGS (15)
  1. LANTUS [Concomitant]
     Active Substance: INSULIN GLARGINE
     Dosage: BEFORE DINNER DOSE:14 UNIT(S)
  2. SANDOSTATIN [Concomitant]
     Active Substance: OCTREOTIDE ACETATE
     Dosage: 1 VIAL
     Route: 058
  3. SEGURIL [Suspect]
     Active Substance: FUROSEMIDE
     Indication: CARDIAC FAILURE CONGESTIVE
     Dosage: 40 MG PREVIAMENTE 1 CP AL DIA
     Route: 048
     Dates: start: 20140903, end: 20140925
  4. ALDACTACINE [Suspect]
     Active Substance: ALTHIAZIDE\SPIRONOLACTONE
     Indication: CARDIAC FAILURE
     Dosage: 25/15 MG
     Route: 048
     Dates: start: 2012, end: 20140925
  5. PARACETAMOL [Concomitant]
     Active Substance: ACETAMINOPHEN
     Indication: PAIN
  6. ARANESP [Concomitant]
     Active Substance: DARBEPOETIN ALFA
     Dosage: 60:1 EVERY 15 DAYS
  7. HIDROFEROL [Concomitant]
     Active Substance: CALCIFEDIOL
     Dosage: ONE AMPOULE DRUNK EVERY 15 DAYS
  8. ALDACTACINE [Suspect]
     Active Substance: ALTHIAZIDE\SPIRONOLACTONE
     Indication: CARDIAC FAILURE CONGESTIVE
     Dosage: 25/15 MG
     Route: 048
     Dates: start: 2012, end: 20140925
  9. LOBIVON [Concomitant]
     Active Substance: NEBIVOLOL HYDROCHLORIDE
  10. COZAAR [Concomitant]
     Active Substance: LOSARTAN POTASSIUM
     Dosage: AT BREAKFAST
  11. TRAMADOL [Concomitant]
     Active Substance: TRAMADOL
  12. ROCALTROL [Concomitant]
     Active Substance: CALCITRIOL
     Dosage: 0.25
  13. LORAZEPAM. [Concomitant]
     Active Substance: LORAZEPAM
     Indication: SLEEP DISORDER
  14. NTG [Concomitant]
     Active Substance: NITROGLYCERIN
     Dosage: FORM: PATCH 10 DAILY
  15. OMEPRAZOLE. [Concomitant]
     Active Substance: OMEPRAZOLE
     Dosage: AT BREAKFAST

REACTIONS (4)
  - Somnolence [Recovered/Resolved]
  - Hypovolaemia [Unknown]
  - Disturbance in social behaviour [Recovered/Resolved]
  - Hyponatraemia [Recovered/Resolved]

NARRATIVE: CASE EVENT DATE: 20140921
